FAERS Safety Report 7319163-3 (Version None)
Quarter: 2011Q1

REPORT INFORMATION
  Report Type: 
  Country: None (occurrence: None)
  Receive Date: 20110228
  Receipt Date: 20110217
  Transmission Date: 20110831
  Serious: Yes (Other)
  Sender: FDA-Public Use
  Company Number: PHHY2011CA02254

PATIENT
  Sex: Female

DRUGS (21)
  1. DURAGESIC-100 [Concomitant]
     Dosage: 50 UG, 1X 72
  2. PANTOLOC [Concomitant]
     Dosage: UNK
  3. SOFLAX [Concomitant]
  4. POTASSIUM [Concomitant]
     Indication: MINERAL SUPPLEMENTATION
     Dosage: 2 DF, BID
  5. VITAMIN D [Concomitant]
     Dosage: 3400 IU, UNK
  6. DURAGESIC-100 [Concomitant]
     Indication: PAIN
     Dosage: 100 UG, 1X 72
  7. ACLASTA [Suspect]
     Indication: OSTEOPOROSIS
     Dosage: 5 MG, YEARLY
     Route: 042
     Dates: start: 20091208, end: 20110126
  8. CRESTOR [Concomitant]
     Indication: BLOOD CHOLESTEROL
     Dosage: 10 MG, UNK
  9. MULTI-VITAMINS [Concomitant]
  10. PROPOLIS [Concomitant]
     Dosage: 3X 50 DROP DAILY
  11. FLOVENT [Concomitant]
     Dosage: 2 PUFFS TWICE DAILY
  12. MIACALCIN [Concomitant]
     Indication: OSTEOPOROSIS
     Dosage: 1 SPRAY DAILY
  13. LORAZEPAM [Concomitant]
     Dosage: 1 DF, QD AT BEDTIME
  14. ALBUTEROL [Concomitant]
     Dosage: 1 PUFF DAILY
  15. VITAMIN B-12 [Concomitant]
     Dosage: 1 DF, UNK
  16. ASA [Concomitant]
     Dosage: 81 MG, UNK
  17. ATROVENT [Concomitant]
     Dosage: 2 PUFFS 3 TIMES A DAY
  18. GABAPENTIN [Concomitant]
     Indication: PAIN
     Dosage: 2 DF, BID
  19. CALCIUM [Concomitant]
     Dosage: 1800 MG, UNK
  20. SYNTHROID [Concomitant]
     Indication: THYROID DISORDER
  21. LENOLTECH NO 3 [Concomitant]
     Dosage: 1-2 TAB EVERY 4 HRS

REACTIONS (1)
  - FIBROCYSTIC BREAST DISEASE [None]
